FAERS Safety Report 20725601 (Version 1)
Quarter: 2022Q2

REPORT INFORMATION
  Report Type: Spontaneous
  Country: US (occurrence: None)
  Receive Date: 20220419
  Receipt Date: 20220419
  Transmission Date: 20220720
  Serious: Yes (Other)
  Sender: FDA-Public Use
  Company Number: None

PATIENT
  Age: 36 Year
  Sex: Male
  Weight: 130.00 kg

DRUGS (5)
  1. LITHIUM [Suspect]
     Active Substance: LITHIUM
     Dosage: FREQUENCY : DAILY;?
     Route: 048
     Dates: start: 20210612, end: 20220211
  2. LITHIUM [Suspect]
     Active Substance: LITHIUM
     Dosage: FREQUENCY : TWICE A DAY;?
     Route: 048
     Dates: start: 20210612, end: 20220211
  3. FAMOTIDINE [Concomitant]
     Active Substance: FAMOTIDINE
  4. ATORVASTATIN [Concomitant]
     Active Substance: ATORVASTATIN
  5. ESCITALOPRAM [Concomitant]
     Active Substance: ESCITALOPRAM OXALATE

REACTIONS (11)
  - Laboratory test abnormal [None]
  - Blood creatinine increased [None]
  - Blood chloride increased [None]
  - Antipsychotic drug level increased [None]
  - Blood glucose increased [None]
  - Blood pressure increased [None]
  - Glomerular filtration rate decreased [None]
  - Vision blurred [None]
  - Pollakiuria [None]
  - Renal injury [None]
  - Diabetes insipidus [None]

NARRATIVE: CASE EVENT DATE: 20220210
